FAERS Safety Report 14541899 (Version 4)
Quarter: 2022Q2

REPORT INFORMATION
  Report Type: Spontaneous
  Country: US (occurrence: US)
  Receive Date: 20180216
  Receipt Date: 20220629
  Transmission Date: 20220720
  Serious: No
  Sender: FDA-Public Use
  Company Number: US-JNJFOC-20180206763

PATIENT
  Age: 12 Year
  Sex: Male

DRUGS (11)
  1. RISPERDAL [Suspect]
     Active Substance: RISPERIDONE
     Indication: Product used for unknown indication
     Route: 048
     Dates: start: 20090603, end: 20150726
  2. RISPERIDONE [Suspect]
     Active Substance: RISPERIDONE
     Indication: Disturbance in social behaviour
     Route: 048
     Dates: start: 20090603, end: 20130806
  3. RISPERIDONE [Suspect]
     Active Substance: RISPERIDONE
     Indication: Oppositional defiant disorder
  4. RISPERIDONE [Suspect]
     Active Substance: RISPERIDONE
     Indication: Post-traumatic stress disorder
  5. RISPERIDONE [Suspect]
     Active Substance: RISPERIDONE
     Indication: Attention deficit hyperactivity disorder
  6. RISPERIDONE [Suspect]
     Active Substance: RISPERIDONE
     Indication: Affective disorder
  7. INVEGA [Suspect]
     Active Substance: PALIPERIDONE
     Indication: Behaviour disorder
     Dosage: IN VARYING DOSES OF 1.5 MG AND 3 MG
     Route: 048
     Dates: start: 20140903, end: 20150726
  8. INVEGA [Suspect]
     Active Substance: PALIPERIDONE
     Indication: Oppositional defiant disorder
  9. INVEGA [Suspect]
     Active Substance: PALIPERIDONE
     Indication: Attention deficit hyperactivity disorder
  10. INVEGA [Suspect]
     Active Substance: PALIPERIDONE
     Indication: Post-traumatic stress disorder
  11. RISPERIDONE [Suspect]
     Active Substance: RISPERIDONE
     Indication: Product used for unknown indication
     Route: 065

REACTIONS (4)
  - Blood prolactin increased [Unknown]
  - Gynaecomastia [Unknown]
  - Emotional distress [Unknown]
  - Treatment noncompliance [Unknown]

NARRATIVE: CASE EVENT DATE: 20150617
